FAERS Safety Report 16473500 (Version 1)
Quarter: 2019Q2

REPORT INFORMATION
  Report Type: Spontaneous
  Country: US (occurrence: US)
  Receive Date: 20190515
  Receipt Date: 20190515
  Transmission Date: 20190711
  Serious: No
  Sender: FDA-Public Use
  Company Number: None

PATIENT
  Age: 31 Year
  Sex: Male

DRUGS (1)
  1. HARVONI [Suspect]
     Active Substance: LEDIPASVIR\SOFOSBUVIR
     Indication: HEPATITIS C
     Route: 048
     Dates: start: 20190424

REACTIONS (4)
  - Chest pain [None]
  - Muscle spasms [None]
  - Abdominal pain upper [None]
  - Muscle twitching [None]

NARRATIVE: CASE EVENT DATE: 20190515
